FAERS Safety Report 9011548 (Version 1)
Quarter: 2013Q1

REPORT INFORMATION
  Report Type: Spontaneous
  Country: US (occurrence: US)
  Receive Date: 20130108
  Receipt Date: 20130108
  Transmission Date: 20140127
  Serious: No
  Sender: FDA-Public Use
  Company Number: US-009507513-1212USA003207

PATIENT
  Age: 70 Year
  Sex: Male

DRUGS (2)
  1. JANUVIA [Suspect]
     Indication: DIABETES MELLITUS MANAGEMENT
     Dosage: 100 MG, UNK
     Route: 048
  2. JANUVIA [Suspect]
     Indication: DIABETES MELLITUS MANAGEMENT
     Dosage: 4 DF, QD
     Route: 048

REACTIONS (2)
  - Dysphagia [Unknown]
  - Inappropriate schedule of drug administration [Unknown]
